FAERS Safety Report 16917882 (Version 2)
Quarter: 2019Q4

REPORT INFORMATION
  Report Type: Spontaneous
  Country: GB (occurrence: GB)
  Receive Date: 20191015
  Receipt Date: 20191022
  Transmission Date: 20200122
  Serious: Yes (Other)
  Sender: FDA-Public Use
  Company Number: GB-SA-2019SA280007

PATIENT
  Sex: Male

DRUGS (1)
  1. PLAVIX [Suspect]
     Active Substance: CLOPIDOGREL BISULFATE
     Indication: STENT PLACEMENT
     Dosage: UNK UNK, UNK
     Route: 065
     Dates: start: 201909

REACTIONS (5)
  - Dyspnoea [Unknown]
  - Abscess [Unknown]
  - Lower respiratory tract infection [Unknown]
  - Insomnia [Unknown]
  - Panic attack [Unknown]

NARRATIVE: CASE EVENT DATE: 201909
